FAERS Safety Report 8318254-8 (Version None)
Quarter: 2012Q2

REPORT INFORMATION
  Report Type: 
  Country: None (occurrence: None)
  Receive Date: 20120425
  Receipt Date: 20120411
  Transmission Date: 20120825
  Serious: Yes (Hospitalization)
  Sender: FDA-Public Use
  Company Number: DSJ-2012-02445

PATIENT
  Age: 51 Year
  Sex: Female

DRUGS (3)
  1. BENICAR HCT [Suspect]
     Indication: HYPERTENSION
     Dosage: 20/12.5 MG (1 IN 1 D), PER ORAL
     Route: 048
     Dates: start: 20110101, end: 20120301
  2. BENICAR HCT [Suspect]
     Indication: HYPERTENSION
     Dosage: 20/12.5 MG (1 IN 1 D), PER ORAL
     Route: 048
     Dates: start: 20120407
  3. BETAHISTINE (BETAHISTINE) [Concomitant]

REACTIONS (7)
  - DIZZINESS [None]
  - HEADACHE [None]
  - LABYRINTHITIS [None]
  - DRUG INEFFECTIVE [None]
  - DYSPNOEA [None]
  - TINNITUS [None]
  - OEDEMA PERIPHERAL [None]
